FAERS Safety Report 17525071 (Version 1)
Quarter: 2020Q1

REPORT INFORMATION
  Report Type: Spontaneous
  Country: FR (occurrence: FR)
  Receive Date: 20200311
  Receipt Date: 20200311
  Transmission Date: 20200409
  Serious: Yes (Other)
  Sender: FDA-Public Use
  Company Number: FR-TEVA-2020-FR-1196408

PATIENT
  Age: 96 Year
  Sex: Female
  Weight: 66 kg

DRUGS (8)
  1. VESICARE [Suspect]
     Active Substance: SOLIFENACIN SUCCINATE
     Indication: PRODUCT USED FOR UNKNOWN INDICATION
     Dosage: EVENING 5 MG
     Route: 048
     Dates: start: 20171213
  2. LYRICA [Concomitant]
     Active Substance: PREGABALIN
     Indication: PRODUCT USED FOR UNKNOWN INDICATION
     Dosage: 1-1-1 75 MG
     Route: 048
     Dates: start: 20171213
  3. PARACETAMOL [Concomitant]
     Active Substance: ACETAMINOPHEN
     Indication: PAIN
     Dosage: 1 G
     Route: 048
  4. INEXIUM 20 MG, COMPRIM? GASTRO-R?SISTANT [Concomitant]
     Active Substance: ESOMEPRAZOLE MAGNESIUM
     Indication: GASTROOESOPHAGEAL REFLUX DISEASE
     Dosage: 20 MG
     Route: 048
     Dates: start: 20171213
  5. PREVISCAN [Concomitant]
     Indication: CARDIAC FAILURE
     Dosage: UNSPECIFIED
     Route: 048
     Dates: end: 201912
  6. ELIQUIS [Suspect]
     Active Substance: APIXABAN
     Indication: CARDIAC FAILURE
     Dosage: MORNING AND EVENING 5 MG
     Route: 048
     Dates: start: 201912
  7. FUROSEMIDE. [Suspect]
     Active Substance: FUROSEMIDE
     Indication: HYPERTENSION
     Dosage: IN THE MORNING 20 MG
     Route: 048
     Dates: start: 20171213
  8. RAMIPRIL. [Suspect]
     Active Substance: RAMIPRIL
     Indication: HYPERTENSION
     Dosage: IN THE MORNING 2.5 MG
     Route: 048
     Dates: start: 20171213

REACTIONS (1)
  - Colitis ischaemic [Recovered/Resolved]

NARRATIVE: CASE EVENT DATE: 20200203
